FAERS Safety Report 8133076-9 (Version None)
Quarter: 2012Q1

REPORT INFORMATION
  Report Type: 
  Country: None (occurrence: None)
  Receive Date: 20120103
  Receipt Date: 20110825
  Transmission Date: 20120608
  Serious: No
  Sender: FDA-Public Use
  Company Number: AE-2011-001136

PATIENT
  Age: 54 Year
  Sex: Female
  Weight: 92.9874 kg

DRUGS (3)
  1. INCIVEK [Suspect]
     Dosage: 2250 MG (750 MG,3 IN 1 D)
     Dates: start: 20110822
  2. RIBASPHERE [Concomitant]
  3. PEG-INTRON [Concomitant]

REACTIONS (2)
  - PYREXIA [None]
  - CHILLS [None]
